FAERS Safety Report 5393435-4 (Version None)
Quarter: 2007Q3

REPORT INFORMATION
  Report Type: 
  Country: None (occurrence: None)
  Receive Date: 20070723
  Receipt Date: 20070713
  Transmission Date: 20080115
  Serious: Yes (Other)
  Sender: FDA-Public Use
  Company Number: PHNU2007DE01909

PATIENT
  Age: 72 Year
  Sex: Female
  Weight: 70 kg

DRUGS (5)
  1. ZOMETA [Suspect]
     Indication: METASTASES TO BONE
     Dosage: 4 MG, QMO
     Route: 042
     Dates: start: 20060721, end: 20070419
  2. ZOMETA [Suspect]
     Indication: VOMITING
     Dosage: 4 MG, QMO
     Route: 042
     Dates: start: 20060721, end: 20070419
  3. TAXOTERE [Concomitant]
     Indication: METASTASES TO LUNG
     Dosage: 100 MG/M2, UNK
     Route: 065
     Dates: start: 20060701, end: 20061101
  4. DEXAMETHASONE 0.5MG TAB [Concomitant]
     Indication: PROPHYLAXIS
     Dosage: 8 MG, UNK
     Route: 042
  5. FASLODEX [Concomitant]
     Indication: BLOOD OESTROGEN DECREASED
     Dosage: 1 AMPOULE EVERY 4 WEEKS
     Route: 065
     Dates: start: 20061201

REACTIONS (2)
  - ORAL SURGERY [None]
  - OSTEONECROSIS [None]
